FAERS Safety Report 9170179 (Version 1)
Quarter: 2013Q1

REPORT INFORMATION
  Report Type: Spontaneous
  Country: US (occurrence: None)
  Receive Date: 20130311
  Receipt Date: 20130311
  Transmission Date: 20140127
  Serious: Yes (Other)
  Sender: FDA-Public Use
  Company Number: AUR-APL-2013-02089

PATIENT
  Age: 54 Year
  Sex: Male

DRUGS (7)
  1. ZIDOVUDINE (ZIDOVUDINE) [Suspect]
     Indication: HIV INFECTION
  2. DIDANOSINE [Suspect]
     Indication: HIV INFECTION
     Dates: start: 1996, end: 1999
  3. RITONAVIR [Suspect]
     Indication: HIV INFECTION
     Dosage: (100 MG, 1 D), UNKNOWN
  4. MARAVIROC [Suspect]
     Indication: HIV INFECTION
     Dosage: (600 MG, 1 D), UNKNOWN
  5. ABACAVIR W/LAMIVUDINE [Suspect]
     Dosage: 600/300 MG/D, UNKNOWN
  6. DARUNAVIR [Suspect]
     Indication: HIV INFECTION
     Dosage: (800 MG, 1 D), UNKNOWN
  7. DIDEOXYCYTIDINE [Suspect]
     Indication: HIV INFECTION
     Dates: start: 1995, end: 1996

REACTIONS (3)
  - Chorioretinal atrophy [None]
  - Intraocular lens implant [None]
  - Toxicity to various agents [None]
